FAERS Safety Report 10931211 (Version 4)
Quarter: 2016Q3

REPORT INFORMATION
  Report Type: Spontaneous
  Country: US (occurrence: US)
  Receive Date: 20150319
  Receipt Date: 20160803
  Transmission Date: 20161109
  Serious: Yes (Other)
  Sender: FDA-Public Use
  Company Number: US-PFIZER INC-2015098435

PATIENT
  Age: 46 Year
  Sex: Male
  Weight: 93 kg

DRUGS (36)
  1. LYRICA [Suspect]
     Active Substance: PREGABALIN
     Dosage: 150 MG, 2X/DAY
     Route: 048
     Dates: start: 20131028
  2. LYRICA [Suspect]
     Active Substance: PREGABALIN
     Dosage: 150 MG, 1X/DAY AT BEDTIME
     Route: 048
     Dates: start: 20141024
  3. LYRICA [Suspect]
     Active Substance: PREGABALIN
     Dosage: 225 MG, 3X/DAY
     Route: 048
  4. ZOLPIDEM TARTRATE. [Concomitant]
     Active Substance: ZOLPIDEM TARTRATE
     Dosage: 10 MG, AS NEEDED AT BEDTIME
     Route: 048
     Dates: start: 20160321
  5. FLUTICASONE PROPIONATE. [Concomitant]
     Active Substance: FLUTICASONE PROPIONATE
     Dosage: 50 UG, AS NEEDED (TWICE DAILY)
     Route: 045
     Dates: start: 20151026
  6. ASPIRIN. [Concomitant]
     Active Substance: ASPIRIN
     Dosage: 81 MG, DAILY
     Route: 048
     Dates: start: 20140725
  7. LYRICA [Suspect]
     Active Substance: PREGABALIN
     Dosage: 225 MG, 3X/DAY
     Route: 048
     Dates: start: 20150310
  8. LYRICA [Suspect]
     Active Substance: PREGABALIN
     Dosage: 75 MG, 2X/DAY
     Route: 048
     Dates: start: 20130102
  9. LYRICA [Suspect]
     Active Substance: PREGABALIN
     Dosage: 150 MG, 2X/DAY
     Route: 048
     Dates: start: 20140314
  10. LYRICA [Suspect]
     Active Substance: PREGABALIN
     Dosage: 225 MG, 3X/DAY
     Route: 048
     Dates: start: 20150614
  11. LYRICA [Suspect]
     Active Substance: PREGABALIN
     Dosage: 225 MG, 1X/DAY
     Route: 048
  12. CLARITIN [Concomitant]
     Active Substance: LORATADINE
     Dosage: 10 MG, AS NEEDED
     Route: 048
     Dates: start: 20111111
  13. MILK OF MAGNESIA [Concomitant]
     Active Substance: MAGNESIUM HYDROXIDE
     Dosage: 7.75% SUSPENSION 1 AS NEEDED
     Route: 048
     Dates: start: 20130409
  14. MARIJUANA [Concomitant]
     Active Substance: CANNABIS SATIVA SUBSP. INDICA TOP
     Dosage: UNK
  15. LYRICA [Suspect]
     Active Substance: PREGABALIN
     Indication: NECK PAIN
     Dosage: 225 MG, 3X/DAY
     Route: 048
  16. LYRICA [Suspect]
     Active Substance: PREGABALIN
     Dosage: 225 MG, 3X/DAY
     Route: 048
     Dates: start: 20140721
  17. TRAMADOL HCL [Concomitant]
     Active Substance: TRAMADOL HYDROCHLORIDE
     Dosage: 100 MG, AS NEEDED (TWO TIMES DAILY)
     Route: 048
     Dates: start: 20160203
  18. LYRICA [Suspect]
     Active Substance: PREGABALIN
     Dosage: 150 MG, 2X/DAY
     Route: 048
     Dates: start: 20131125
  19. LYRICA [Suspect]
     Active Substance: PREGABALIN
     Dosage: 225 MG, 3X/DAY
     Route: 048
     Dates: start: 20141010
  20. ZOLPIDEM TARTRATE. [Concomitant]
     Active Substance: ZOLPIDEM TARTRATE
     Dosage: 10 MG, AS NEEDED AT BEDTIME
     Route: 048
     Dates: start: 20160617
  21. LYRICA [Suspect]
     Active Substance: PREGABALIN
     Dosage: 150MG, 1-2 CAPSULE, 2X/DAY
     Route: 048
     Dates: start: 20130524
  22. LYRICA [Suspect]
     Active Substance: PREGABALIN
     Dosage: 150 MG, 2X/DAY
     Route: 048
     Dates: start: 20130819
  23. LYRICA [Suspect]
     Active Substance: PREGABALIN
     Dosage: 150 MG, 1X/DAY AT BEDTIME
     Route: 048
     Dates: start: 20140721
  24. LYRICA [Suspect]
     Active Substance: PREGABALIN
     Dosage: 225 MG, 3X/DAY
     Route: 048
     Dates: start: 20150614
  25. IBUPROFEN. [Concomitant]
     Active Substance: IBUPROFEN
     Dosage: 800 MG, AS NEEDED (THREE TIMES DAILY )
     Route: 048
     Dates: start: 20150624
  26. LYRICA [Suspect]
     Active Substance: PREGABALIN
     Indication: BACK PAIN
     Dosage: UNK
  27. LYRICA [Suspect]
     Active Substance: PREGABALIN
     Dosage: 150 MG, 2X/DAY
     Route: 048
     Dates: start: 20130501
  28. LYRICA [Suspect]
     Active Substance: PREGABALIN
     Dosage: 150 MG, 2X/DAY
     Route: 048
     Dates: start: 20140708
  29. LYRICA [Suspect]
     Active Substance: PREGABALIN
     Dosage: 225 MG, 3X/DAY
     Route: 048
     Dates: start: 20160617
  30. LYRICA [Suspect]
     Active Substance: PREGABALIN
     Dosage: 150 MG, 2X/DAY
     Route: 048
     Dates: start: 20130603
  31. LYRICA [Suspect]
     Active Substance: PREGABALIN
     Dosage: 150 MG, 2X/DAY
     Route: 048
     Dates: start: 20130619
  32. LYRICA [Suspect]
     Active Substance: PREGABALIN
     Dosage: 225 MG, 1X/DAY
     Route: 048
     Dates: start: 20140721
  33. LYRICA [Suspect]
     Active Substance: PREGABALIN
     Dosage: 225 MG, 3X/DAY
     Route: 048
     Dates: start: 20151026
  34. LYRICA [Suspect]
     Active Substance: PREGABALIN
     Dosage: 225 MG, 3X/DAY
     Route: 048
     Dates: start: 20160114
  35. IBUPROFEN. [Concomitant]
     Active Substance: IBUPROFEN
     Indication: TENDONITIS
     Dosage: 800 MG, AS NEEDED (THREE TIMES DAILY )
     Route: 048
     Dates: start: 20160617
  36. VITAMIN B12 [Concomitant]
     Active Substance: CYANOCOBALAMIN
     Dosage: 100 UG, ALTERNATE DAY (EVERY OTHER DAY )
     Route: 048
     Dates: start: 20140514

REACTIONS (30)
  - Hyporeflexia [Unknown]
  - Headache [Unknown]
  - Vertigo [Unknown]
  - Tendonitis [Unknown]
  - Anaemia [Unknown]
  - Condition aggravated [Unknown]
  - Erectile dysfunction [Unknown]
  - Testicular swelling [Unknown]
  - Fatigue [Unknown]
  - Substance abuse [Unknown]
  - Muscular weakness [Unknown]
  - Limb discomfort [Unknown]
  - Post-traumatic pain [Unknown]
  - Pain in extremity [Unknown]
  - Balance disorder [Unknown]
  - Sinusitis [Unknown]
  - Prescribed overdose [Unknown]
  - Hyperhidrosis [Unknown]
  - Insomnia [Unknown]
  - Back pain [Unknown]
  - Drug ineffective [Unknown]
  - Depressed mood [Unknown]
  - Pain [Unknown]
  - Pollakiuria [Unknown]
  - Dizziness [Unknown]
  - Eustachian tube dysfunction [Unknown]
  - Paronychia [Unknown]
  - Otitis media [Unknown]
  - Weight decreased [Unknown]
  - Paranasal sinus discomfort [Unknown]

NARRATIVE: CASE EVENT DATE: 20130204
